FAERS Safety Report 8838675 (Version 2)
Quarter: 2013Q1

REPORT INFORMATION
  Report Type: Report from Study
  Country: DK (occurrence: DK)
  Receive Date: 20121012
  Receipt Date: 20130111
  Transmission Date: 20140127
  Serious: Yes (Hospitalization)
  Sender: FDA-Public Use
  Company Number: DK-PFIZER INC-2012245805

PATIENT
  Age: 76 Year
  Sex: Male

DRUGS (9)
  1. CELECOXIB [Suspect]
     Indication: OSTEOARTHRITIS
     Dosage: 100 MG, 2X/DAY
     Route: 048
     Dates: start: 20110112, end: 20120502
  2. CENTYL K [Concomitant]
     Indication: BLOOD PRESSURE
     Dosage: UNK
     Dates: start: 20080917, end: 20120502
  3. CIRCADIN [Concomitant]
     Indication: INSOMNIA
     Dosage: UNK
     Dates: start: 20110221, end: 20120502
  4. COZAAR [Concomitant]
     Indication: BLOOD PRESSURE
     Dosage: UNK
     Dates: start: 20111013
  5. SIMVASTATIN [Concomitant]
     Indication: BLOOD CHOLESTEROL
     Dosage: UNK
     Dates: start: 20110221
  6. GLIMEPIRIDE [Concomitant]
     Indication: DIABETES MELLITUS
     Dosage: UNK
     Dates: start: 20090831
  7. MAREVAN FORTE [Concomitant]
     Indication: COAGULOPATHY
     Dosage: AS PER AGREEMENT
     Dates: start: 20080624
  8. IMDUR [Concomitant]
     Indication: ANGINA PECTORIS
     Dosage: UNK
     Dates: start: 20090618
  9. DOLOL [Concomitant]
     Indication: PAIN
     Dosage: UNK
     Dates: start: 20120413

REACTIONS (3)
  - Pulmonary hypertension [Recovered/Resolved]
  - Urinary retention [Recovered/Resolved]
  - Cardiac failure [Recovered/Resolved]
